FAERS Safety Report 6440928-4 (Version None)
Quarter: 2009Q4

REPORT INFORMATION
  Report Type: 
  Country: None (occurrence: None)
  Receive Date: 20091116
  Receipt Date: 20091106
  Transmission Date: 20100525
  Serious: Yes (Hospitalization)
  Sender: FDA-Public Use
  Company Number: US-ELI_LILLY_AND_COMPANY-US200911002109

PATIENT
  Age: 51 Year
  Sex: Female

DRUGS (4)
  1. ALIMTA [Suspect]
     Indication: NON-SMALL CELL LUNG CANCER STAGE IV
     Dosage: 500 MG/M2, UNK
  2. AVASTIN [Concomitant]
     Indication: NON-SMALL CELL LUNG CANCER STAGE IV
  3. VITAMIN B-12 [Concomitant]
  4. FOLIC ACID [Concomitant]

REACTIONS (7)
  - BLOOD BILIRUBIN INCREASED [None]
  - BLOOD CALCIUM DECREASED [None]
  - BLOOD CREATININE INCREASED [None]
  - DEHYDRATION [None]
  - NAUSEA [None]
  - PANCYTOPENIA [None]
  - VOMITING [None]
